FAERS Safety Report 6905875-X (Version None)
Quarter: 2010Q3

REPORT INFORMATION
  Report Type: 
  Country: None (occurrence: None)
  Receive Date: 20100804
  Receipt Date: 20100722
  Transmission Date: 20110219
  Serious: Yes (Hospitalization, Disabling)
  Sender: FDA-Public Use
  Company Number: US-ROCHE-716621

PATIENT
  Age: 33 Year
  Sex: Female

DRUGS (8)
  1. NAPROSYN [Suspect]
     Route: 065
  2. PROPOXYPHENE HCL [Suspect]
     Route: 065
  3. DARVOCET [Suspect]
     Route: 065
  4. NITROGLYCERIN [Concomitant]
     Indication: CHEST PAIN
     Route: 060
  5. ROCEPHIN [Concomitant]
     Route: 042
  6. CIPROFLOXACIN [Concomitant]
     Route: 042
  7. CYTOXAN [Concomitant]
  8. BACTRIM [Concomitant]

REACTIONS (3)
  - GANGRENE [None]
  - LEUKOCYTOCLASTIC VASCULITIS [None]
  - PERIPHERAL ISCHAEMIA [None]
